FAERS Safety Report 11893036 (Version 2)
Quarter: 2016Q1

REPORT INFORMATION
  Report Type: Spontaneous
  Country: US (occurrence: US)
  Receive Date: 20160106
  Receipt Date: 20160308
  Transmission Date: 20160526
  Serious: No
  Sender: FDA-Public Use
  Company Number: US-TEVA-623116USA

PATIENT
  Age: 44 Year
  Sex: Female

DRUGS (7)
  1. OXCARBAZEPINE. [Concomitant]
     Active Substance: OXCARBAZEPINE
  2. TRILEPTAL [Concomitant]
     Active Substance: OXCARBAZEPINE
  3. XANAX [Concomitant]
     Active Substance: ALPRAZOLAM
  4. LAMICTAL [Concomitant]
     Active Substance: LAMOTRIGINE
  5. PRISTIQ EXTENDED RELEASE [Concomitant]
     Active Substance: DESVENLAFAXINE SUCCINATE
  6. TRILEPTAL [Concomitant]
     Active Substance: OXCARBAZEPINE
  7. COPAXONE [Suspect]
     Active Substance: GLATIRAMER ACETATE
     Indication: MULTIPLE SCLEROSIS
     Route: 058
     Dates: start: 201509

REACTIONS (1)
  - Fall [Recovered/Resolved]

NARRATIVE: CASE EVENT DATE: 201510
